FAERS Safety Report 5356059-0 (Version None)
Quarter: 2007Q2

REPORT INFORMATION
  Report Type: 
  Country: None (occurrence: None)
  Receive Date: 20070524
  Receipt Date: 20070208
  Transmission Date: 20071010
  Serious: Yes (Death)
  Sender: FDA-Public Use
  Company Number: T200700171

PATIENT

DRUGS (2)
  1. METHADOSE [Suspect]
  2. ALCOHOL /00002101/(ETHANOL) [Suspect]

REACTIONS (1)
  - DEATH [None]
